FAERS Safety Report 18280897 (Version 5)
Quarter: 2021Q1

REPORT INFORMATION
  Report Type: Report from Study
  Country: BE (occurrence: BE)
  Receive Date: 20200917
  Receipt Date: 20210219
  Transmission Date: 20210419
  Serious: Yes (Hospitalization, Other)
  Sender: FDA-Public Use
  Company Number: BE-BRISTOL-MYERS SQUIBB COMPANY-BMS-2020-073577

PATIENT
  Age: 71 Year
  Sex: Male

DRUGS (27)
  1. INSULINE [INSULIN PORCINE] [Concomitant]
     Active Substance: INSULIN PORK\INSULIN PURIFIED PORK
     Indication: PRODUCT USED FOR UNKNOWN INDICATION
     Dosage: 1000 DOSAGE FORM WITH EACH MEAL
     Route: 058
     Dates: start: 20190702, end: 20190716
  2. SIPRALEXA [Concomitant]
     Active Substance: ESCITALOPRAM OXALATE
     Indication: ANTIDEPRESSANT THERAPY
     Dosage: 10000 MILLIGRAM, QD
     Route: 048
     Dates: start: 20180117
  3. D?CURE [Concomitant]
     Active Substance: CHOLECALCIFEROL
     Indication: VITAMIN SUPPLEMENTATION
     Dosage: 25000 INTERNATIONAL UNIT, Q3WK
     Route: 048
     Dates: start: 20180713, end: 20181112
  4. PARACETAMOL [Concomitant]
     Active Substance: ACETAMINOPHEN
     Indication: ADVERSE EVENT
     Dosage: 1000 GRAM, QD
     Route: 065
     Dates: start: 20190121
  5. HYDROCORTISONE. [Concomitant]
     Active Substance: HYDROCORTISONE
     Dosage: 25000 MILLIGRAM, QD
     Route: 048
     Dates: start: 20190417
  6. METHYLPREDNISOLONE. [Concomitant]
     Active Substance: METHYLPREDNISOLONE
     Indication: ADVERSE EVENT
     Dosage: 48000 MILLIGRAM, QD
     Route: 048
     Dates: start: 20190617, end: 20190701
  7. METHYLPREDNISOLONE. [Concomitant]
     Active Substance: METHYLPREDNISOLONE
     Dosage: 24000 MILLIGRAM, QD
     Route: 048
     Dates: start: 20190707, end: 20190711
  8. NIVOLUMAB [Suspect]
     Active Substance: NIVOLUMAB
     Indication: MALIGNANT MELANOMA
     Dosage: 240 MILLIGRAM
     Route: 042
     Dates: start: 20180917, end: 20190527
  9. NOVONORM [Concomitant]
     Active Substance: REPAGLINIDE
     Indication: PRODUCT USED FOR UNKNOWN INDICATION
     Dosage: 1000 MILLIGRAM, BID
     Route: 048
     Dates: start: 20171220
  10. OXAZEPAM. [Concomitant]
     Active Substance: OXAZEPAM
     Indication: PRODUCT USED FOR UNKNOWN INDICATION
     Dosage: 1500 MILLIGRAM, QD
     Route: 048
     Dates: start: 20181029
  11. PARACETAMOL [Concomitant]
     Active Substance: ACETAMINOPHEN
     Dosage: 1000 GRAM ONCE
     Route: 042
     Dates: start: 20190708, end: 20190708
  12. NAPROXEN. [Concomitant]
     Active Substance: NAPROXEN
     Indication: ADVERSE EVENT
     Dosage: 1000 DOSAGE FORM AS PER NEEDED
     Route: 048
     Dates: start: 20180204, end: 20190617
  13. HYDROCORTISONE. [Concomitant]
     Active Substance: HYDROCORTISONE
     Indication: ADVERSE EVENT
     Dosage: 30000 MILLIGRAM, QD
     Route: 048
     Dates: start: 20190207, end: 20190401
  14. METHYLPREDNISOLONE. [Concomitant]
     Active Substance: METHYLPREDNISOLONE
     Dosage: 16000 MILLIGRAM, QD
     Route: 048
     Dates: start: 20190712, end: 20190715
  15. NIVOLUMAB [Suspect]
     Active Substance: NIVOLUMAB
     Dosage: 221 MILLIGRAM
     Route: 042
     Dates: end: 20190527
  16. MICARDIS PLUS [Concomitant]
     Active Substance: HYDROCHLOROTHIAZIDE\TELMISARTAN
     Indication: PRODUCT USED FOR UNKNOWN INDICATION
     Dosage: 1000 MILLIGRAM, QD
     Route: 048
     Dates: start: 2008, end: 20190528
  17. MICARDIS PLUS [Concomitant]
     Active Substance: HYDROCHLOROTHIAZIDE\TELMISARTAN
     Dosage: 1000 DOSAGE FORM
     Route: 048
     Dates: start: 20190624, end: 20190701
  18. GLUCOPHAGE [Concomitant]
     Active Substance: METFORMIN HYDROCHLORIDE
     Dosage: 500000 MILLIGRAM, BID
     Route: 048
     Dates: start: 20190717
  19. METHYLPREDNISOLONE. [Concomitant]
     Active Substance: METHYLPREDNISOLONE
     Dosage: 32000 MILLIGRAM, QD
     Route: 048
     Dates: start: 20190702, end: 20190706
  20. AMLODIPINE [Concomitant]
     Active Substance: AMLODIPINE BESYLATE
     Dosage: 2500 MILLIGRAM, QD
     Route: 048
     Dates: start: 20190809
  21. GLUCOPHAGE [Concomitant]
     Active Substance: METFORMIN HYDROCHLORIDE
     Indication: PRODUCT USED FOR UNKNOWN INDICATION
     Dosage: 500000 MILLIGRAM, QD
     Route: 048
     Dates: start: 2006, end: 20190701
  22. D?CURE [Concomitant]
     Active Substance: CHOLECALCIFEROL
     Dosage: 25000 INTERNATIONAL UNIT, QWK
     Route: 048
     Dates: start: 20181113, end: 20190617
  23. MICARDIS [Concomitant]
     Active Substance: TELMISARTAN
     Indication: PRODUCT USED FOR UNKNOWN INDICATION
     Dosage: 20000 MILLIGRAM, QD
     Route: 048
     Dates: start: 20190808
  24. TRADONAL [Concomitant]
     Active Substance: TRAMADOL HYDROCHLORIDE
     Indication: PRODUCT USED FOR UNKNOWN INDICATION
     Dosage: 20000 MILLIGRAM ONCE
     Route: 042
     Dates: start: 20190708, end: 20190708
  25. OMEPRAZOLE. [Concomitant]
     Active Substance: OMEPRAZOLE
     Indication: PROPHYLAXIS
     Dosage: 20000 MILLIGRAM, QD
     Route: 048
  26. HYDROCORTISONE. [Concomitant]
     Active Substance: HYDROCORTISONE
     Dosage: 15000 MILLIGRAM, QD
     Route: 048
     Dates: start: 20190402, end: 20190416
  27. AMLODIPINE [Concomitant]
     Active Substance: AMLODIPINE BESYLATE
     Indication: ADVERSE EVENT
     Dosage: 5000 MILLIGRAM, QD
     Route: 048
     Dates: start: 20190612, end: 20190808

REACTIONS (9)
  - Hip fracture [Recovered/Resolved]
  - Adrenal insufficiency [Recovered/Resolved]
  - Hyponatraemia [Recovered/Resolved]
  - Back pain [Recovered/Resolved]
  - Off label use [Unknown]
  - Myalgia [Not Recovered/Not Resolved]
  - Renal failure [Recovered/Resolved]
  - Tubulointerstitial nephritis [Recovered/Resolved]
  - Hypertension [Recovered/Resolved]

NARRATIVE: CASE EVENT DATE: 20181015
